FAERS Safety Report 6341862-0 (Version None)
Quarter: 2009Q3

REPORT INFORMATION
  Report Type: 
  Country: None (occurrence: None)
  Receive Date: 20090902
  Receipt Date: 20081022
  Transmission Date: 20100115
  Serious: Yes (Hospitalization)
  Sender: FDA-Public Use
  Company Number: CIP08001384

PATIENT
  Age: 25 Year
  Sex: Female

DRUGS (3)
  1. ASACOL [Suspect]
     Indication: COLITIS
     Dosage: 1200 MG THREE TIMES DAILY, ORAL
     Route: 048
     Dates: start: 20080704, end: 20080725
  2. ASACOL [Suspect]
     Indication: COLITIS ULCERATIVE
     Dosage: 1200 MG THREE TIMES DAILY, ORAL
     Route: 048
     Dates: start: 20080704, end: 20080725
  3. IRON COMPLEX [Concomitant]

REACTIONS (12)
  - CHEST DISCOMFORT [None]
  - CHEST PAIN [None]
  - CONDITION AGGRAVATED [None]
  - DIARRHOEA [None]
  - FATIGUE [None]
  - INFLUENZA LIKE ILLNESS [None]
  - LEUKOCYTOSIS [None]
  - MUSCULOSKELETAL STIFFNESS [None]
  - PERICARDITIS [None]
  - PLEURITIC PAIN [None]
  - PYREXIA [None]
  - TRICUSPID VALVE INCOMPETENCE [None]
